FAERS Safety Report 25865342 (Version 2)
Quarter: 2025Q4

REPORT INFORMATION
  Report Type: Spontaneous
  Country: US (occurrence: US)
  Receive Date: 20250930
  Receipt Date: 20251001
  Transmission Date: 20260118
  Serious: No
  Sender: SANOFI AVENTIS
  Company Number: US-SA-2025SA283295

PATIENT
  Age: 26 Year
  Sex: Female

DRUGS (3)
  1. DUPIXENT [Suspect]
     Active Substance: DUPILUMAB
     Indication: Asthma
     Dosage: UNK
     Dates: start: 2019
  2. DUPIXENT [Suspect]
     Active Substance: DUPILUMAB
     Indication: Eczema
     Dosage: 600 MG, 1X
     Route: 058
     Dates: start: 20250916, end: 20250916
  3. DUPIXENT [Suspect]
     Active Substance: DUPILUMAB
     Indication: Dermatitis atopic

REACTIONS (15)
  - Palpitations [Unknown]
  - Heart rate increased [Unknown]
  - Heart rate irregular [Unknown]
  - Erythema [Recovered/Resolved]
  - Hot flush [Recovered/Resolved]
  - Dyspnoea [Unknown]
  - Chest discomfort [Unknown]
  - Extrasystoles [Unknown]
  - Lacrimation increased [Unknown]
  - Anxiety [Unknown]
  - Dizziness [Unknown]
  - Headache [Unknown]
  - Depression [Unknown]
  - Dry eye [Unknown]
  - Eye pruritus [Unknown]

NARRATIVE: CASE EVENT DATE: 20190101
